FAERS Safety Report 7074225-3 (Version None)
Quarter: 2010Q4

REPORT INFORMATION
  Report Type: 
  Country: None (occurrence: None)
  Receive Date: 20101029
  Receipt Date: 20101021
  Transmission Date: 20110411
  Serious: Yes (Other)
  Sender: FDA-Public Use
  Company Number: TW-GENZYME-CERZ-1001223

PATIENT

DRUGS (3)
  1. CEREZYME [Suspect]
     Indication: GAUCHER'S DISEASE
     Dosage: 800 U, Q2W
     Route: 042
     Dates: start: 20090818
  2. CEREZYME [Suspect]
     Dosage: 1000 U, Q2W
     Route: 042
     Dates: start: 20061030, end: 20090818
  3. CEREZYME [Suspect]
     Dosage: 30 U/KG, Q2W
     Route: 042

REACTIONS (1)
  - CHITOTRIOSIDASE INCREASED [None]
